FAERS Safety Report 7438386-6 (Version None)
Quarter: 2011Q2

REPORT INFORMATION
  Report Type: 
  Country: None (occurrence: None)
  Receive Date: 20110426
  Receipt Date: 20110404
  Transmission Date: 20111010
  Serious: Yes (Hospitalization, Other)
  Sender: FDA-Public Use
  Company Number: US-BAYER-201039637NA

PATIENT
  Age: 35 Year
  Sex: Female
  Weight: 97.506 kg

DRUGS (6)
  1. COUMADIN [Concomitant]
     Dosage: 2 MG, QD
     Route: 048
  2. YAZ [Suspect]
     Indication: ORAL CONTRACEPTION
     Dosage: UNK
     Route: 048
     Dates: start: 20070814, end: 20090101
  3. VITAMIN D [Concomitant]
     Dosage: 5000 MG, OW
     Route: 048
  4. VICODIN [Concomitant]
     Dosage: UNK UNK, PRN
     Route: 048
  5. LORAZEPAM [Concomitant]
     Dosage: 0.5 MG, Q4HR
     Route: 048
  6. OXYCODONE HCL [Concomitant]
     Dosage: 5 MG, Q4HR
     Route: 048

REACTIONS (2)
  - DEEP VEIN THROMBOSIS [None]
  - PULMONARY EMBOLISM [None]
